FAERS Safety Report 14138870 (Version 3)
Quarter: 2018Q1

REPORT INFORMATION
  Report Type: Report from Study
  Country: GT (occurrence: GT)
  Receive Date: 20171027
  Receipt Date: 20180215
  Transmission Date: 20180508
  Serious: Yes (Hospitalization)
  Sender: FDA-Public Use
  Company Number: PHHY2016GT087542

PATIENT
  Age: 53 Year
  Sex: Female
  Weight: 53.52 kg

DRUGS (1)
  1. GILENYA [Suspect]
     Active Substance: FINGOLIMOD HYDROCHLORIDE
     Indication: MULTIPLE SCLEROSIS
     Dosage: 0.5 MG, QD
     Route: 048
     Dates: start: 20160622

REACTIONS (23)
  - Multiple sclerosis relapse [Recovering/Resolving]
  - Head injury [Unknown]
  - Movement disorder [Recovering/Resolving]
  - Screaming [Unknown]
  - Balance disorder [Recovering/Resolving]
  - Malaise [Unknown]
  - Tick paralysis [Unknown]
  - Gait disturbance [Recovering/Resolving]
  - Headache [Recovered/Resolved]
  - Anxiety [Unknown]
  - Loss of consciousness [Unknown]
  - Crying [Unknown]
  - Fall [Recovering/Resolving]
  - Pyrexia [Unknown]
  - Muscular weakness [Unknown]
  - Tinnitus [Unknown]
  - Somnolence [Unknown]
  - Pollakiuria [Unknown]
  - Dizziness [Recovering/Resolving]
  - Abdominal discomfort [Recovering/Resolving]
  - Diarrhoea [Unknown]
  - Pain [Unknown]
  - Tremor [Unknown]

NARRATIVE: CASE EVENT DATE: 201709
